FAERS Safety Report 4372885-9 (Version None)
Quarter: 2004Q2

REPORT INFORMATION
  Report Type: 
  Country: None (occurrence: None)
  Receive Date: 20040603
  Receipt Date: 20040430
  Transmission Date: 20050107
  Serious: Yes (Hospitalization)
  Sender: FDA-Public Use
  Company Number: F01200400948

PATIENT
  Age: 65 Year
  Sex: Male

DRUGS (8)
  1. OXALIPLATIN - SOLUTION -130 MG/M2 [Suspect]
     Dosage: 190 MG Q3W, 1500 MG TWICE A DAY PER ORAL FROM D1 TO D15, Q3W ; INTRAVENOUS NOS
     Route: 042
     Dates: start: 20040407, end: 20040407
  2. CAPECITABINE- TABLET- 1000 MG/M2 [Suspect]
     Dosage: ORAL
     Route: 048
     Dates: start: 20040407, end: 20040417
  3. SODIUM CHLORIDE 0.9% [Concomitant]
  4. SODIUM CHLORIDE INJ [Concomitant]
  5. CALCIUM GLUCONATE [Concomitant]
  6. METOCLOPRAMIDE [Concomitant]
  7. DIMENHYDRINATE [Concomitant]
  8. NYSTATIN [Concomitant]

REACTIONS (3)
  - GASTRITIS [None]
  - MUCOSAL INFLAMMATION [None]
  - RENAL FAILURE [None]
